FAERS Safety Report 6007997-7 (Version None)
Quarter: 2008Q4

REPORT INFORMATION
  Report Type: 
  Country: None (occurrence: None)
  Receive Date: 20081217
  Receipt Date: 20080625
  Transmission Date: 20090506
  Serious: No
  Sender: FDA-Public Use
  Company Number: US-ASTRAZENECA-2008UW12802

PATIENT
  Age: 87 Year
  Sex: Male

DRUGS (11)
  1. CRESTOR [Suspect]
     Indication: BLOOD CHOLESTEROL INCREASED
     Route: 048
     Dates: start: 20080519
  2. PLAVIX [Concomitant]
     Indication: BLOOD PRESSURE
  3. TRAZODONE HCL [Concomitant]
  4. ASPIRIN [Concomitant]
  5. EYE DROPS [Concomitant]
  6. VITAMINS [Concomitant]
  7. SAW PALMETTO [Concomitant]
  8. MAGNESIUM SULFATE [Concomitant]
  9. ASCORBIC ACID [Concomitant]
  10. FISH OIL [Concomitant]
  11. COENZYME Q10 [Concomitant]

REACTIONS (2)
  - INSOMNIA [None]
  - MUSCULAR WEAKNESS [None]
